FAERS Safety Report 17511912 (Version 1)
Quarter: 2020Q1

REPORT INFORMATION
  Report Type: Spontaneous
  Country: US (occurrence: US)
  Receive Date: 20200307
  Receipt Date: 20200307
  Transmission Date: 20200409
  Serious: No
  Sender: FDA-Public Use
  Company Number: US-ASTRAZENECA-2020SE29842

PATIENT
  Sex: Female

DRUGS (3)
  1. OMEPRAZOLE. [Suspect]
     Active Substance: OMEPRAZOLE
     Dosage: UNKNOWN
     Route: 048
  2. VITAMIN D [Concomitant]
     Active Substance: VITAMIN D NOS
  3. CENTRUM??? MULTIGUMMIES MULTI+BEAUTY [Suspect]
     Active Substance: MINERALS\VITAMINS
     Dosage: UNKNOWN
     Route: 065

REACTIONS (2)
  - Eructation [Unknown]
  - Dyspepsia [Unknown]
